FAERS Safety Report 5242336-0 (Version None)
Quarter: 2007Q1

REPORT INFORMATION
  Report Type: 
  Country: None (occurrence: None)
  Receive Date: 20070216
  Receipt Date: 20070216
  Transmission Date: 20070707
  Serious: Yes (Hospitalization)
  Sender: FDA-Public Use
  Company Number: None

PATIENT
  Age: 41 Year
  Sex: Male

DRUGS (7)
  1. IBUPROFEN [Suspect]
     Indication: PAIN
     Dosage: 800 MG TID
     Dates: start: 20041201
  2. RANITIDINE [Concomitant]
  3. CLONAZEPAM [Concomitant]
  4. LORTAB [Concomitant]
  5. CYCLOBENZAPRINE HCL [Concomitant]
  6. TRAMADOL HCL [Concomitant]
  7. TRAZODONE HCL [Concomitant]

REACTIONS (1)
  - GASTROINTESTINAL HAEMORRHAGE [None]
